FAERS Safety Report 10365478 (Version 1)
Quarter: 2014Q1

REPORT INFORMATION
  Report Type: Spontaneous
  Country: US (occurrence: None)
  Receive Date: 20140306
  Receipt Date: 20140306
  Transmission Date: 20141002
  Serious: Yes (Disabling, Other)
  Sender: FDA-Public Use
  Company Number: 163-21880-13022305

PATIENT
  Age: 67 Year
  Sex: Male

DRUGS (11)
  1. REVLIMID (LENALIDOMIDE) (CAPSULES) [Suspect]
     Indication: PLASMA CELL MYELOMA
     Route: 048
     Dates: start: 20100202, end: 2010
  2. ACYCLOVIR (ACICLOVIR) (UNKNOWN) [Concomitant]
  3. DEXAMETHASONE (UNKNOWN) [Concomitant]
  4. MORPHINE SULFATE (UNKNOWN) [Concomitant]
  5. PAMIDRONATE (PAMIDRONATE DISODIUM) (UNKNOWN) [Concomitant]
  6. PROCHLORPERAZINE (UNKNOWN) [Concomitant]
  7. VITAMIN D (ERGOCALCIFEROL) (UNKNOWN) [Concomitant]
  8. FLEXERIL (CYCLOBENZAPRINE HYDROCHLORIDE) (UNKNOWN) [Concomitant]
  9. DILAUDID (HYDROMORPHONE HYDROCHLORIDE) (UNKNOWN) [Concomitant]
  10. MORPHINE (UNKNOWN) [Concomitant]
  11. AMBIEN (ZOLPIDEM TARTRATE) (UNKNOWN) [Concomitant]

REACTIONS (4)
  - Compression fracture [None]
  - Herpes zoster [None]
  - Muscle spasms [None]
  - Constipation [None]
